FAERS Safety Report 12141787 (Version 1)
Quarter: 2016Q1

REPORT INFORMATION
  Report Type: Report from Study
  Country: CO (occurrence: CO)
  Receive Date: 20160303
  Receipt Date: 20160303
  Transmission Date: 20160526
  Serious: Yes (Hospitalization)
  Sender: FDA-Public Use
  Company Number: PHHY2016CO028593

PATIENT
  Age: 37 Year
  Sex: Male

DRUGS (1)
  1. TASIGNA [Suspect]
     Active Substance: NILOTINIB
     Indication: CHRONIC MYELOID LEUKAEMIA
     Dosage: 200 MG, QD
     Route: 048

REACTIONS (4)
  - Headache [Unknown]
  - Vomiting [Unknown]
  - Erythema [Unknown]
  - Food poisoning [Unknown]

NARRATIVE: CASE EVENT DATE: 20160229
